FAERS Safety Report 7337249-4 (Version None)
Quarter: 2011Q1

REPORT INFORMATION
  Report Type: 
  Country: None (occurrence: None)
  Receive Date: 20110224
  Receipt Date: 20110216
  Transmission Date: 20110831
  Serious: Yes (Other)
  Sender: FDA-Public Use
  Company Number: 2010GW000766

PATIENT
  Age: 51 Year
  Sex: Male

DRUGS (1)
  1. ALDARA [Suspect]
     Indication: SQUAMOUS CELL CARCINOMA
     Dosage: 5 PCT; QD; TOP
     Route: 061
     Dates: start: 20100901, end: 20100904

REACTIONS (1)
  - STEVENS-JOHNSON SYNDROME [None]
